FAERS Safety Report 8555575-8 (Version None)
Quarter: 2012Q3

REPORT INFORMATION
  Report Type: 
  Country: None (occurrence: None)
  Receive Date: 20120731
  Receipt Date: 20111116
  Transmission Date: 20120928
  Serious: No
  Sender: FDA-Public Use
  Company Number: US-ASTRAZENECA-2010SE58367

PATIENT
  Age: 38 Year
  Sex: Male
  Weight: 99.8 kg

DRUGS (7)
  1. SEROQUEL [Suspect]
     Indication: BIPOLAR DISORDER
     Dosage: 2 DOSES FORM  AT NIGHT
     Route: 048
     Dates: start: 20101001
  2. SEROQUEL [Suspect]
     Route: 048
     Dates: end: 20101201
  3. SEROQUEL [Suspect]
     Route: 048
     Dates: end: 20101201
  4. SEROQUEL [Suspect]
     Route: 048
  5. SEROQUEL [Suspect]
     Indication: INSOMNIA
     Dosage: 2 DOSES FORM  AT NIGHT
     Route: 048
     Dates: start: 20101001
  6. LITHIUM CARBONATE [Concomitant]
     Indication: BIPOLAR DISORDER
  7. SEROQUEL [Suspect]
     Route: 048

REACTIONS (4)
  - DRUG DOSE OMISSION [None]
  - INCORRECT DOSE ADMINISTERED [None]
  - INSOMNIA [None]
  - ABDOMINAL PAIN UPPER [None]
